FAERS Safety Report 8174167-6 (Version None)
Quarter: 2012Q1

REPORT INFORMATION
  Report Type: 
  Country: None (occurrence: None)
  Receive Date: 20120229
  Receipt Date: 20120207
  Transmission Date: 20120608
  Serious: Yes (Death, Hospitalization)
  Sender: FDA-Public Use
  Company Number: US-ROCHE-1042677

PATIENT
  Age: 82 Year
  Sex: Female
  Weight: 40.5 kg

DRUGS (3)
  1. CARBOPLATIN [Suspect]
     Indication: FALLOPIAN TUBE CANCER
     Dosage: AUC = 6 IV ON DAY 1 (
     Route: 042
  2. AVASTIN [Suspect]
     Indication: FALLOPIAN TUBE CANCER
     Dosage: 30-90 MINUTES ON DAY 1 OF CYCLES 2
     Route: 042
     Dates: start: 20110922
  3. PACLITAXEL [Suspect]
     Indication: FALLOPIAN TUBE CANCER
     Dosage: OVER 3 HRS ON DAY 1
     Route: 042
     Dates: start: 20110922

REACTIONS (3)
  - DYSPNOEA [None]
  - PLATELET COUNT DECREASED [None]
  - LUNG INFECTION [None]
